FAERS Safety Report 9845179 (Version 1)
Quarter: 2014Q1

REPORT INFORMATION
  Report Type: Spontaneous
  Country: US (occurrence: US)
  Receive Date: 20140127
  Receipt Date: 20140127
  Transmission Date: 20141002
  Serious: Yes (Other)
  Sender: FDA-Public Use
  Company Number: US-PFIZER INC-2014021339

PATIENT
  Sex: 0

DRUGS (2)
  1. MYCOPHENOLATE MOFETIL [Suspect]
     Indication: HEART TRANSPLANT
     Dosage: UNK
  2. TACROLIMUS [Concomitant]
     Indication: HEART TRANSPLANT
     Dosage: UNK

REACTIONS (3)
  - Pulmonary haemorrhage [Recovering/Resolving]
  - Capillaritis [Recovering/Resolving]
  - Acute respiratory failure [Recovering/Resolving]
